FAERS Safety Report 5923942-4 (Version None)
Quarter: 2008Q4

REPORT INFORMATION
  Report Type: 
  Country: None (occurrence: None)
  Receive Date: 20081015
  Receipt Date: 20081001
  Transmission Date: 20090506
  Serious: Yes (Life-Threatening, Hospitalization, Disabling, Other)
  Sender: FDA-Public Use
  Company Number: A-CH2005-10774

PATIENT
  Age: 51 Year
  Sex: Female

DRUGS (10)
  1. TRACLEER [Suspect]
     Indication: EISENMENGER'S SYNDROME
     Dosage: 62.5 MG, BID, ORAL
     Route: 048
     Dates: start: 20050907
  2. SULFASALAZINE [Concomitant]
  3. CEFTRIAXONE [Concomitant]
  4. METRONIDAZOLE [Concomitant]
  5. WARFARIN SODIUM [Concomitant]
  6. LANSOPRAZOLE [Concomitant]
  7. LORATADINE [Concomitant]
  8. MEBEVERINE (MEBEVERINE) [Concomitant]
  9. METOCLOPRAMIDE [Concomitant]
  10. AMITRIPTYLINE HYDROCHLORIDE [Concomitant]

REACTIONS (7)
  - BRAIN ABSCESS [None]
  - C-REACTIVE PROTEIN INCREASED [None]
  - EOSINOPHIL COUNT DECREASED [None]
  - LYMPHOCYTE COUNT DECREASED [None]
  - NEUTROPENIA [None]
  - OFF LABEL USE [None]
  - WHITE BLOOD CELL COUNT DECREASED [None]
